FAERS Safety Report 4971154-3 (Version None)
Quarter: 2006Q1

REPORT INFORMATION
  Report Type: 
  Country: None (occurrence: None)
  Receive Date: 20060222
  Receipt Date: 20050309
  Transmission Date: 20060701
  Serious: Yes (Hospitalization, Other)
  Sender: FDA-Public Use
  Company Number: HQWYE058211MAR05

PATIENT
  Age: 28 Year
  Sex: Male
  Weight: 75.82 kg

DRUGS (3)
  1. PROTONIX [Suspect]
     Indication: DYSPHAGIA
     Dosage: 40 MG 1X PER 1 DAY, ORAL
     Route: 048
     Dates: start: 20050218, end: 20050307
  2. PROTONIX [Suspect]
     Indication: GASTROOESOPHAGEAL REFLUX DISEASE
     Dosage: 40 MG 1X PER 1 DAY, ORAL
     Route: 048
     Dates: start: 20050218, end: 20050307
  3. UNSPECIFIED HERBAL PRODUCT (UNSPECIFIED HERBAL PRODUCT) [Concomitant]

REACTIONS (1)
  - HYPERTENSION [None]
